FAERS Safety Report 21232910 (Version 1)
Quarter: 2022Q3

REPORT INFORMATION
  Report Type: Spontaneous
  Country: CN (occurrence: CN)
  Receive Date: 20220819
  Receipt Date: 20220819
  Transmission Date: 20221027
  Serious: Yes (Life-Threatening, Hospitalization, Other)
  Sender: FDA-Public Use
  Company Number: CN-PFIZER INC-PV202200045204

PATIENT
  Age: 4 Year
  Sex: Male
  Weight: 18.7 kg

DRUGS (5)
  1. METHOTREXATE SODIUM [Suspect]
     Active Substance: METHOTREXATE SODIUM
     Indication: Acute lymphocytic leukaemia
     Dosage: 2.19 G, 1X/DAY
     Route: 041
     Dates: start: 20220705, end: 20220805
  2. METHOTREXATE SODIUM [Suspect]
     Active Substance: METHOTREXATE SODIUM
     Indication: Chemotherapy
  3. METHOTREXATE SODIUM [Suspect]
     Active Substance: METHOTREXATE SODIUM
     Indication: Neoplasm malignant
  4. MERCAPTOPURINE [Suspect]
     Active Substance: MERCAPTOPURINE
     Indication: Acute lymphocytic leukaemia
     Dosage: 0.33 DF, 1X/DAY
     Route: 048
     Dates: start: 20220705, end: 20220718
  5. SODIUM CHLORIDE [Concomitant]
     Active Substance: SODIUM CHLORIDE
     Indication: Vehicle solution use
     Dosage: 500 ML, 1X/DAY
     Route: 041
     Dates: start: 20220705, end: 20220805

REACTIONS (5)
  - Myelosuppression [Recovered/Resolved]
  - Renal failure [Recovered/Resolved]
  - Infection [Recovered/Resolved]
  - Toxicity to various agents [Unknown]
  - Drug clearance decreased [Unknown]

NARRATIVE: CASE EVENT DATE: 20220706
